FAERS Safety Report 5606325-6 (Version None)
Quarter: 2008Q1

REPORT INFORMATION
  Report Type: 
  Country: None (occurrence: None)
  Receive Date: 20080129
  Receipt Date: 20070613
  Transmission Date: 20080703
  Serious: No
  Sender: FDA-Public Use
  Company Number: A0657049A

PATIENT
  Sex: Female

DRUGS (2)
  1. BUPROPION HCL [Suspect]
     Indication: DRUG USE FOR UNKNOWN INDICATION
     Dosage: 300MG PER DAY
     Dates: start: 20070606
  2. WELLBUTRIN XL [Suspect]
     Indication: DRUG USE FOR UNKNOWN INDICATION
     Dosage: 150MG PER DAY

REACTIONS (2)
  - SENSATION OF FOREIGN BODY [None]
  - THROAT TIGHTNESS [None]
